FAERS Safety Report 6099125-7 (Version None)
Quarter: 2009Q1

REPORT INFORMATION
  Report Type: 
  Country: None (occurrence: None)
  Receive Date: 20090302
  Receipt Date: 20090225
  Transmission Date: 20090719
  Serious: Yes (Hospitalization)
  Sender: FDA-Public Use
  Company Number: US-B.I. PHARMACEUTICALS,INC./RIDGEFIELD-2009-BP-00087BP

PATIENT
  Sex: Female

DRUGS (1)
  1. MICARDIS [Suspect]

REACTIONS (1)
  - MYOCARDIAL INFARCTION [None]
